FAERS Safety Report 5065208-3 (Version None)
Quarter: 2006Q3

REPORT INFORMATION
  Report Type: 
  Country: None (occurrence: None)
  Receive Date: 20060727
  Receipt Date: 20060727
  Transmission Date: 20061208
  Serious: Yes (Other)
  Sender: FDA-Public Use
  Company Number: None

PATIENT
  Age: 46 Year
  Sex: Female
  Weight: 69.4003 kg

DRUGS (7)
  1. TOPIRAMATE [Suspect]
     Dosage: 250MG  QHS   PO
     Route: 048
     Dates: start: 20060518, end: 20060618
  2. RISPERIDONE [Suspect]
     Dosage: 5MG  QHS  PO
     Route: 048
     Dates: start: 20060518, end: 20060618
  3. ACETAMINOPHEN [Concomitant]
  4. DIPHENHYDRAMINE HCL [Concomitant]
  5. DOCUSATE [Concomitant]
  6. HALOPERIDOL [Concomitant]
  7. LORAZEPAM [Concomitant]

REACTIONS (1)
  - NEUTROPENIA [None]
